FAERS Safety Report 25934365 (Version 1)
Quarter: 2025Q4

REPORT INFORMATION
  Report Type: Spontaneous
  Country: MY (occurrence: MY)
  Receive Date: 20251017
  Receipt Date: 20251017
  Transmission Date: 20260117
  Serious: Yes (Hospitalization, Other)
  Sender: NEXUS PHARMACEUTICALS
  Company Number: MY-Nexus Pharma-000498

PATIENT
  Age: 32 Year
  Sex: Male

DRUGS (3)
  1. CYCLOPHOSPHAMIDE [Suspect]
     Active Substance: CYCLOPHOSPHAMIDE
     Indication: Cauda equina syndrome
     Route: 042
  2. METHYLPREDNISOLONE [Suspect]
     Active Substance: METHYLPREDNISOLONE
     Indication: Cauda equina syndrome
     Route: 042
  3. HUMAN IMMUNOGLOBULIN G [Suspect]
     Active Substance: HUMAN IMMUNOGLOBULIN G
     Indication: Cauda equina syndrome
     Route: 042

REACTIONS (5)
  - Pulmonary embolism [Unknown]
  - Pulmonary cavitation [Unknown]
  - Hypotension [Unknown]
  - Tachycardia [Unknown]
  - Staphylococcal infection [Unknown]
